FAERS Safety Report 15201827 (Version 1)
Quarter: 2018Q3

REPORT INFORMATION
  Report Type: Spontaneous
  Country: US (occurrence: US)
  Receive Date: 20180726
  Receipt Date: 20180726
  Transmission Date: 20181010
  Serious: No
  Sender: FDA-Public Use
  Company Number: US-MYLANLABS-2018M1050636

PATIENT
  Age: 50 Year
  Sex: Male
  Weight: 100 kg

DRUGS (2)
  1. MIDODRINE HYDROCHLORIDE TABLETS USP [Suspect]
     Active Substance: MIDODRINE HYDROCHLORIDE
     Indication: PRODUCT USED FOR UNKNOWN INDICATION
     Dosage: 5 MG, UNK
     Route: 048
     Dates: start: 20180620, end: 20180702
  2. MIDODRINE HYDROCHLORIDE TABLETS USP [Suspect]
     Active Substance: MIDODRINE HYDROCHLORIDE
     Dosage: 10 MG, UNK
     Route: 048

REACTIONS (3)
  - Delusion [Not Recovered/Not Resolved]
  - Confusional state [Not Recovered/Not Resolved]
  - Vomiting [Recovered/Resolved]

NARRATIVE: CASE EVENT DATE: 20180701
